FAERS Safety Report 7476231-3 (Version None)
Quarter: 2011Q2

REPORT INFORMATION
  Report Type: 
  Country: None (occurrence: None)
  Receive Date: 20110510
  Receipt Date: 20110510
  Transmission Date: 20111010
  Serious: Yes (Other)
  Sender: FDA-Public Use
  Company Number: None

PATIENT
  Sex: Female
  Weight: 67 kg

DRUGS (7)
  1. NOVOLOG [Concomitant]
  2. LUPRON [Suspect]
     Indication: UTERINE INFLAMMATION
     Dosage: 11.25MG Q3MONTHS IM
     Route: 030
     Dates: start: 20090406, end: 20110509
  3. LISINOPRIL [Concomitant]
  4. ALBUTEROL [Concomitant]
  5. CITALOPRAM HYDROBROMIDE [Concomitant]
  6. CREON [Concomitant]
  7. PRILOSEC [Concomitant]

REACTIONS (4)
  - HAEMOGLOBIN DECREASED [None]
  - INJECTION SITE DISCHARGE [None]
  - INJECTION SITE CYST [None]
  - ABSCESS [None]
